FAERS Safety Report 12151388 (Version 1)
Quarter: 2016Q1

REPORT INFORMATION
  Report Type: Report from Study
  Country: FR (occurrence: FR)
  Receive Date: 20160304
  Receipt Date: 20160304
  Transmission Date: 20160526
  Serious: Yes (Other)
  Sender: FDA-Public Use
  Company Number: FR-SEATTLE GENETICS-2015SGN01831

PATIENT

DRUGS (8)
  1. BRENTUXIMAB VEDOTIN [Suspect]
     Active Substance: BRENTUXIMAB VEDOTIN
     Indication: T-CELL LYMPHOMA
     Dosage: UNK
     Route: 065
     Dates: start: 20120817
  2. ZELITREX [Concomitant]
     Active Substance: VALACYCLOVIR HYDROCHLORIDE
     Dosage: 1 G, QD
     Route: 065
  3. HYDROCORTISONE. [Concomitant]
     Active Substance: HYDROCORTISONE
     Dosage: 30 MG, QD
     Route: 065
  4. FOLINORAL [Concomitant]
     Active Substance: LEUCOVORIN CALCIUM
     Dosage: UNK
     Route: 065
  5. BACTRIM [Concomitant]
     Active Substance: SULFAMETHOXAZOLE\TRIMETHOPRIM
     Dosage: 800 MG, TID
     Route: 065
  6. CRESTOR [Concomitant]
     Active Substance: ROSUVASTATIN CALCIUM
     Indication: HYPERCHOLESTEROLAEMIA
     Dosage: 5 MG, QD
     Route: 065
  7. ZANIDIP [Concomitant]
     Active Substance: LERCANIDIPINE HYDROCHLORIDE
     Dosage: 20 MG, QD
     Route: 065
  8. PERMIXON [Concomitant]
     Active Substance: SAW PALMETTO
     Indication: BENIGN PROSTATIC HYPERPLASIA
     Dosage: 10 MG, QD
     Route: 065

REACTIONS (6)
  - Asthenia [Recovered/Resolved]
  - Transaminases increased [Recovered/Resolved]
  - Gamma-glutamyltransferase increased [Recovered/Resolved]
  - Neuropathy peripheral [Recovered/Resolved]
  - Off label use [Recovered/Resolved]
  - Thrombophlebitis [Recovered/Resolved]

NARRATIVE: CASE EVENT DATE: 20120817
